FAERS Safety Report 4301832-0 (Version None)
Quarter: 2004Q1

REPORT INFORMATION
  Report Type: 
  Country: None (occurrence: None)
  Receive Date: 20040218
  Receipt Date: 20031223
  Transmission Date: 20041129
  Serious: Yes (Other)
  Sender: FDA-Public Use
  Company Number: K200301932

PATIENT
  Age: 62 Year
  Sex: Male

DRUGS (2)
  1. PROCANBID [Suspect]
     Dosage: 1500 MG, BID, ORAL
     Route: 048
     Dates: start: 20030901, end: 20031201
  2. MECLIZINE [Concomitant]

REACTIONS (2)
  - MYALGIA [None]
  - SYSTEMIC LUPUS ERYTHEMATOSUS [None]
